FAERS Safety Report 20157094 (Version 1)
Quarter: 2021Q4

REPORT INFORMATION
  Report Type: Spontaneous
  Country: US (occurrence: None)
  Receive Date: 20211207
  Receipt Date: 20211207
  Transmission Date: 20220303
  Serious: Yes (Hospitalization)
  Sender: FDA-Public Use
  Company Number: None

PATIENT
  Age: 62 Year
  Sex: Male

DRUGS (14)
  1. IMATINIB [Suspect]
     Active Substance: IMATINIB
     Indication: Gastrointestinal stromal tumour
     Dosage: FREQUENCY : DAILY;?
     Route: 048
     Dates: start: 20201212
  2. IMATINIB [Suspect]
     Active Substance: IMATINIB
     Indication: Rectal cancer
  3. ASPIRIN [Concomitant]
     Active Substance: ASPIRIN
  4. COZAAR [Concomitant]
     Active Substance: LOSARTAN POTASSIUM
  5. CRESTOR [Concomitant]
     Active Substance: ROSUVASTATIN CALCIUM
  6. GLYBURIDE [Concomitant]
     Active Substance: GLYBURIDE
  7. MELATONIN [Concomitant]
     Active Substance: MELATONIN
  8. METFORMIN [Concomitant]
     Active Substance: METFORMIN HYDROCHLORIDE
  9. VITAMINS [Concomitant]
     Active Substance: VITAMINS
  10. NORVASC [Concomitant]
     Active Substance: AMLODIPINE BESYLATE
  11. PEPCID [Concomitant]
     Active Substance: FAMOTIDINE
  12. TOPROL XL [Concomitant]
     Active Substance: METOPROLOL SUCCINATE
  13. TYLENOL [Concomitant]
     Active Substance: ACETAMINOPHEN
  14. VITAMIN D3 [Concomitant]
     Active Substance: CHOLECALCIFEROL

REACTIONS (4)
  - Diarrhoea [None]
  - Abdominal pain upper [None]
  - Post procedural complication [None]
  - Post procedural complication [None]

NARRATIVE: CASE EVENT DATE: 20210914
